FAERS Safety Report 4640164-8 (Version None)
Quarter: 2005Q2

REPORT INFORMATION
  Report Type: 
  Country: None (occurrence: None)
  Receive Date: 20050413
  Receipt Date: 20050406
  Transmission Date: 20051028
  Serious: Yes (Death, Hospitalization)
  Sender: FDA-Public Use
  Company Number: 2004-01907

PATIENT
  Age: 83 Year
  Sex: Male

DRUGS (4)
  1. IMMUCYST           (BCG - IT (CONNAUGHT)), [Suspect]
     Indication: BLADDER CANCER
     Dosage: 81 MG (81.0 MG) B.IN., BLADDER
     Route: 043
     Dates: start: 20040323, end: 20040504
  2. BROTIZOLAM [Concomitant]
  3. EVIPROSTAT [Concomitant]
  4. NAFTOPIDIL [Concomitant]

REACTIONS (15)
  - ALANINE AMINOTRANSFERASE INCREASED [None]
  - ASPARTATE AMINOTRANSFERASE INCREASED [None]
  - BLADDER CANCER [None]
  - BLOOD ALBUMIN DECREASED [None]
  - BLOOD BILIRUBIN INCREASED [None]
  - BLOOD GLUCOSE INCREASED [None]
  - BLOOD LACTATE DEHYDROGENASE INCREASED [None]
  - BLOOD POTASSIUM INCREASED [None]
  - BLOOD UREA INCREASED [None]
  - BOVINE TUBERCULOSIS [None]
  - HEPATIC FUNCTION ABNORMAL [None]
  - MALIGNANT NEOPLASM PROGRESSION [None]
  - METASTASES TO LIVER [None]
  - PLATELET COUNT INCREASED [None]
  - WHITE BLOOD CELL COUNT INCREASED [None]
